FAERS Safety Report 15662076 (Version 8)
Quarter: 2021Q1

REPORT INFORMATION
  Report Type: Report from Study
  Country: FR (occurrence: FR)
  Receive Date: 20181127
  Receipt Date: 20210105
  Transmission Date: 20210419
  Serious: Yes (Hospitalization, Other)
  Sender: FDA-Public Use
  Company Number: PHHY2018FR164194

PATIENT
  Age: 74 Year
  Sex: Female
  Weight: 59 kg

DRUGS (2)
  1. VOTRIENT [Suspect]
     Active Substance: PAZOPANIB HYDROCHLORIDE
     Indication: METASTATIC RENAL CELL CARCINOMA
     Dosage: 800 MG, QD
     Route: 048
     Dates: start: 20180907, end: 20180923
  2. VOTRIENT [Suspect]
     Active Substance: PAZOPANIB HYDROCHLORIDE
     Dosage: 600 MG, QD
     Route: 048
     Dates: start: 20181001, end: 20190724

REACTIONS (23)
  - Hypertension [Recovered/Resolved]
  - Electrocardiogram T wave inversion [Unknown]
  - Stress cardiomyopathy [Recovering/Resolving]
  - Troponin increased [Unknown]
  - Chest pain [Unknown]
  - Fatigue [Unknown]
  - Chest discomfort [Unknown]
  - Cough [Recovered/Resolved]
  - Nausea [Recovered/Resolved]
  - Asthenia [Recovered/Resolved]
  - Blood creatinine increased [Unknown]
  - Abdominal pain [Unknown]
  - Blood pressure increased [Unknown]
  - Ageusia [Recovered/Resolved]
  - Diarrhoea [Recovered/Resolved]
  - Alopecia [Recovered/Resolved]
  - Heart rate decreased [Unknown]
  - Ventricular hypertrophy [Unknown]
  - Hypertensive crisis [Recovered/Resolved]
  - Anosmia [Not Recovered/Not Resolved]
  - Vomiting [Unknown]
  - Creatinine renal clearance decreased [Unknown]
  - Diastolic dysfunction [Unknown]

NARRATIVE: CASE EVENT DATE: 20180911
